FAERS Safety Report 23128887 (Version 1)
Quarter: 2023Q4

REPORT INFORMATION
  Report Type: Spontaneous
  Country: AU (occurrence: AU)
  Receive Date: 20231031
  Receipt Date: 20231031
  Transmission Date: 20240109
  Serious: Yes (Other)
  Sender: FDA-Public Use
  Company Number: AU-Accord-379029

PATIENT
  Sex: Female

DRUGS (16)
  1. MONTELUKAST [Suspect]
     Active Substance: MONTELUKAST SODIUM
     Indication: Product used for unknown indication
     Dosage: STRENGTH: 10 MG?FREQUENCY: QD
     Route: 065
     Dates: start: 20230607
  2. KETOTIFEN [Suspect]
     Active Substance: KETOTIFEN
     Indication: Product used for unknown indication
     Dosage: STRENGTH: 1 MG?FREQUENCY: QD
     Route: 065
     Dates: start: 20230621
  3. LORATADINE [Suspect]
     Active Substance: LORATADINE
     Indication: Product used for unknown indication
     Dosage: STRENGTH: 20 MG, ?FREQUENCY: BID
     Route: 065
     Dates: start: 20230607
  4. DIPHENHYDRAMINE [Suspect]
     Active Substance: DIPHENHYDRAMINE
     Indication: Product used for unknown indication
     Dosage: STRENGTH: 50 MG?FREQUENCY: QD
     Route: 065
     Dates: start: 20230607
  5. FAMOTIDINE [Suspect]
     Active Substance: FAMOTIDINE
     Indication: Product used for unknown indication
     Dosage: STRENGTH: 40 MG?FREQUENCY: QD
     Route: 065
     Dates: start: 20230607
  6. PROPRANOLOL [Concomitant]
     Active Substance: PROPRANOLOL HYDROCHLORIDE
     Indication: Product used for unknown indication
     Dosage: DOSE: 20 MG TDS
     Route: 065
     Dates: start: 20230607
  7. METHYLPHENIDATE [Concomitant]
     Active Substance: METHYLPHENIDATE
     Indication: Product used for unknown indication
     Dosage: DOSE: 40 MG, TDS
  8. DOMPERIDONE [Concomitant]
     Active Substance: DOMPERIDONE
     Indication: Product used for unknown indication
     Dosage: DOSE: 40 MG?DOSAGE TEXT: 10 MG, QID
     Dates: start: 20230607
  9. GABAPENTIN [Concomitant]
     Active Substance: GABAPENTIN
     Indication: Product used for unknown indication
     Dosage: DOSE: 600 MG, TDS
     Dates: start: 20230607
  10. DEXTROAMPHETAMINE [Concomitant]
     Active Substance: DEXTROAMPHETAMINE
     Indication: Product used for unknown indication
  11. EPINEPHRINE [Concomitant]
     Active Substance: EPINEPHRINE
     Indication: Product used for unknown indication
     Dosage: STRENGTH: 1 MG/ML
  12. PROMETHAZINE [Suspect]
     Active Substance: PROMETHAZINE HYDROCHLORIDE
     Indication: Product used for unknown indication
     Dates: start: 20230704
  13. GABAPENTIN [Concomitant]
     Active Substance: GABAPENTIN
     Indication: Product used for unknown indication
     Dosage: STRENGTH: 400 MG
  14. GABAPENTIN [Concomitant]
     Active Substance: GABAPENTIN
     Indication: Product used for unknown indication
     Dosage: STRENGTH: 600 MG
  15. GABAPENTIN [Concomitant]
     Active Substance: GABAPENTIN
     Indication: Product used for unknown indication
     Dosage: STRENGTH: 800 MG
  16. GABAPENTIN [Concomitant]
     Active Substance: GABAPENTIN
     Indication: Product used for unknown indication
     Dosage: DOSE: 300 MG, TDS

REACTIONS (9)
  - Angioedema [Unknown]
  - Pharyngeal swelling [Unknown]
  - Wheezing [Unknown]
  - Cough [Unknown]
  - Urticaria [Unknown]
  - Flushing [Unknown]
  - Brain fog [Unknown]
  - Dizziness [Unknown]
  - Drug ineffective [Unknown]
